FAERS Safety Report 5560538-0 (Version None)
Quarter: 2007Q4

REPORT INFORMATION
  Report Type: 
  Country: None (occurrence: None)
  Receive Date: 20071215
  Receipt Date: 20071108
  Transmission Date: 20080405
  Serious: No
  Sender: FDA-Public Use
  Company Number: US-ABBOTT-07P-163-0424864-00

PATIENT
  Sex: Female
  Weight: 93.07 kg

DRUGS (5)
  1. HUMIRA [Suspect]
     Indication: CROHN'S DISEASE
     Route: 058
     Dates: start: 20071018
  2. HUMIRA [Suspect]
     Route: 058
  3. HUMIRA [Suspect]
     Route: 058
  4. NUVARING [Concomitant]
     Indication: CONTRACEPTION
     Route: 067
     Dates: start: 20071101
  5. MERCAPTOPURINE [Concomitant]
     Indication: CROHN'S DISEASE
     Route: 048
     Dates: start: 20070101

REACTIONS (1)
  - MENSTRUATION IRREGULAR [None]
